FAERS Safety Report 7763816-X (Version None)
Quarter: 2011Q3

REPORT INFORMATION
  Report Type: 
  Country: None (occurrence: None)
  Receive Date: 20110921
  Receipt Date: 20100818
  Transmission Date: 20111222
  Serious: No
  Sender: FDA-Public Use
  Company Number: US-BAYER-201033976NA

PATIENT
  Sex: Female

DRUGS (2)
  1. MIRENA [Suspect]
     Indication: CONTRACEPTION
     Dosage: 20 MCG/24HR, CONT
  2. MIRENA [Suspect]
     Indication: MENORRHAGIA

REACTIONS (2)
  - DEVICE DIFFICULT TO USE [None]
  - PROCEDURAL PAIN [None]
